FAERS Safety Report 10801366 (Version 18)
Quarter: 2024Q2

REPORT INFORMATION
  Report Type: Other
  Country: CA (occurrence: None)
  Receive Date: 20150217
  Receipt Date: 20240429
  Transmission Date: 20240715
  Serious: Yes (Hospitalization, Other)
  Sender: FDA-Public Use
  Company Number: CA-ROCHE-1536217

PATIENT
  Sex: Female
  Weight: 71.2 kg

DRUGS (17)
  1. RITUXAN [Suspect]
     Active Substance: RITUXIMAB
     Indication: Polymyositis
     Dosage: NOT THROUGH RPAP. 2 INFUSIONS
     Route: 042
     Dates: start: 20140813, end: 201408
  2. RITUXAN [Suspect]
     Active Substance: RITUXIMAB
     Indication: Dermatomyositis
     Dosage: LAST RITUXAN INFUSION WAS RECEIVED ON 12/JAN/2023.
     Route: 042
     Dates: start: 20150522
  3. CELLCEPT [Suspect]
     Active Substance: MYCOPHENOLATE MOFETIL
     Indication: Product used for unknown indication
     Route: 065
  4. PREDNISONE [Suspect]
     Active Substance: PREDNISONE
     Indication: Product used for unknown indication
     Route: 065
  5. IMURAN [Suspect]
     Active Substance: AZATHIOPRINE
     Indication: Product used for unknown indication
     Route: 065
  6. ARAVA [Suspect]
     Active Substance: LEFLUNOMIDE
     Indication: Product used for unknown indication
     Route: 065
  7. CORTISONE [Suspect]
     Active Substance: CORTISONE
     Indication: Product used for unknown indication
     Route: 065
  8. PFIZER-BIONTECH COVID-19 VACCINE [Suspect]
     Active Substance: TOZINAMERAN
     Indication: Product used for unknown indication
     Route: 065
     Dates: start: 20211009, end: 20211009
  9. IODINE [Suspect]
     Active Substance: IODINE
     Indication: Contrast media allergy
     Route: 065
     Dates: start: 2022, end: 2022
  10. ATARAX [Concomitant]
     Active Substance: HYDROXYZINE HYDROCHLORIDE
     Indication: Premedication
     Route: 065
     Dates: start: 20150522
  11. TYLENOL [Concomitant]
     Active Substance: ACETAMINOPHEN
     Indication: Premedication
     Route: 048
     Dates: start: 20150522
  12. SOLU-MEDROL [Concomitant]
     Active Substance: METHYLPREDNISOLONE SODIUM SUCCINATE
     Indication: Premedication
     Route: 042
     Dates: start: 20150522
  13. SYMBICORT [Concomitant]
     Active Substance: BUDESONIDE\FORMOTEROL FUMARATE DIHYDRATE
  14. SYNTHROID [Concomitant]
     Active Substance: LEVOTHYROXINE SODIUM
  15. BUPROPION [Concomitant]
     Active Substance: BUPROPION
  16. METHOTREXATE [Concomitant]
     Active Substance: METHOTREXATE
  17. MESTINON [Concomitant]
     Active Substance: PYRIDOSTIGMINE BROMIDE

REACTIONS (29)
  - COVID-19 [Unknown]
  - Bronchitis [Recovered/Resolved]
  - Menopause [Not Recovered/Not Resolved]
  - Bone disorder [Unknown]
  - Diplopia [Not Recovered/Not Resolved]
  - Thymoma [Unknown]
  - Myasthenia gravis [Unknown]
  - Decreased activity [Unknown]
  - Lung disorder [Unknown]
  - Hand deformity [Not Recovered/Not Resolved]
  - Depression [Unknown]
  - Off label use [Unknown]
  - Ill-defined disorder [Unknown]
  - Viral infection [Unknown]
  - Arthralgia [Not Recovered/Not Resolved]
  - Pain [Recovering/Resolving]
  - Vomiting [Recovered/Resolved]
  - Diarrhoea [Recovered/Resolved]
  - Drug dependence [Unknown]
  - Drug intolerance [Unknown]
  - Arthritis [Unknown]
  - Inflammation [Unknown]
  - Fatigue [Recovered/Resolved]
  - Pyrexia [Recovered/Resolved]
  - Anxiety [Unknown]
  - Oral fungal infection [Recovered/Resolved]
  - Ear infection [Recovered/Resolved]
  - Uterine leiomyoma [Unknown]
  - Nausea [Unknown]

NARRATIVE: CASE EVENT DATE: 20150101
